FAERS Safety Report 15681275 (Version 1)
Quarter: 2018Q4

REPORT INFORMATION
  Report Type: Spontaneous
  Country: US (occurrence: US)
  Receive Date: 20181203
  Receipt Date: 20181203
  Transmission Date: 20190205
  Serious: Yes (Death)
  Sender: FDA-Public Use
  Company Number: US-MERZ NORTH AMERICA, INC.-18MRZ-00611

PATIENT
  Sex: Female

DRUGS (2)
  1. XEOMIN [Suspect]
     Active Substance: INCOBOTULINUMTOXINA
     Indication: HEMIPLEGIA
     Dosage: NDC 00259162001
     Dates: start: 201710, end: 201810
  2. ETHOSUXIMIDE. [Concomitant]
     Active Substance: ETHOSUXIMIDE

REACTIONS (1)
  - Death [Fatal]
